FAERS Safety Report 9296472 (Version 1)
Quarter: 2013Q2

REPORT INFORMATION
  Report Type: Report from Study
  Country: CA (occurrence: CA)
  Receive Date: 20130517
  Receipt Date: 20130517
  Transmission Date: 20140414
  Serious: Yes (Life-Threatening, Other)
  Sender: FDA-Public Use
  Company Number: CA-JNJFOC-20130408398

PATIENT
  Age: 55 Year
  Sex: Male
  Weight: 70.7 kg

DRUGS (3)
  1. REMICADE [Suspect]
     Indication: CROHN^S DISEASE
     Route: 042
     Dates: start: 20130411
  2. REMICADE [Suspect]
     Indication: CROHN^S DISEASE
     Route: 042
     Dates: start: 20130425, end: 20130513
  3. PERCOCET [Concomitant]
     Route: 065

REACTIONS (6)
  - Dyspnoea [Recovering/Resolving]
  - Hypertension [Recovering/Resolving]
  - Infusion related reaction [Recovering/Resolving]
  - Vision blurred [Recovering/Resolving]
  - Headache [Recovering/Resolving]
  - Dizziness [Recovered/Resolved]
